FAERS Safety Report 17553299 (Version 1)
Quarter: 2020Q1

REPORT INFORMATION
  Report Type: Spontaneous
  Country: US (occurrence: US)
  Receive Date: 20200318
  Receipt Date: 20200318
  Transmission Date: 20200409
  Serious: No
  Sender: FDA-Public Use
  Company Number: US-CELGENEUS-USA-20200304891

PATIENT
  Age: 79 Year
  Sex: Female

DRUGS (1)
  1. REVLIMID [Suspect]
     Active Substance: LENALIDOMIDE
     Indication: PLASMA CELL MYELOMA
     Dosage: 2.5 MILLIGRAM
     Route: 048
     Dates: start: 20200304

REACTIONS (5)
  - Hypoaesthesia [Unknown]
  - Peripheral swelling [Unknown]
  - Malaise [Unknown]
  - Nausea [Unknown]
  - Gait disturbance [Unknown]

NARRATIVE: CASE EVENT DATE: 202003
